FAERS Safety Report 7367426-8 (Version None)
Quarter: 2011Q1

REPORT INFORMATION
  Report Type: 
  Country: None (occurrence: None)
  Receive Date: 20110309
  Receipt Date: 20110222
  Transmission Date: 20110831
  Serious: Yes (Other)
  Sender: FDA-Public Use
  Company Number: 2011SP008511

PATIENT
  Age: 63 Year
  Sex: Male
  Weight: 68 kg

DRUGS (4)
  1. KEPPRA [Concomitant]
  2. METHYLPREDNISOLONE [Concomitant]
  3. METHOTREXATE [Suspect]
     Indication: LYMPHOMA
     Dosage: 6.12 GM, QD, IV
     Route: 042
     Dates: start: 20100322, end: 20100421
  4. TEMODAL [Suspect]
     Indication: LYMPHOMA
     Dosage: 270 MG, QD, PO
     Route: 048
     Dates: start: 20100322, end: 20100518

REACTIONS (2)
  - NEPHROPATHY TOXIC [None]
  - RENAL FAILURE ACUTE [None]
